FAERS Safety Report 22074688 (Version 1)
Quarter: 2023Q1

REPORT INFORMATION
  Report Type: Spontaneous
  Country: US (occurrence: US)
  Receive Date: 20230308
  Receipt Date: 20230308
  Transmission Date: 20230417
  Serious: No
  Sender: FDA-Public Use
  Company Number: US-009507513-2303USA000367

PATIENT
  Age: 71 Year
  Sex: Female

DRUGS (3)
  1. BELSOMRA [Suspect]
     Active Substance: SUVOREXANT
     Indication: Insomnia
     Dosage: 20MG NIGHTLY
     Route: 048
     Dates: start: 202212
  2. BELSOMRA [Suspect]
     Active Substance: SUVOREXANT
     Dosage: 20MG NIGHTLY
     Route: 048
     Dates: start: 20230223, end: 20230225
  3. BELSOMRA [Suspect]
     Active Substance: SUVOREXANT
     Dosage: 20MG NIGHTLY
     Route: 048
     Dates: start: 20230227

REACTIONS (2)
  - Drug ineffective [Not Recovered/Not Resolved]
  - Expired product administered [Unknown]

NARRATIVE: CASE EVENT DATE: 20230223
